FAERS Safety Report 15725558 (Version 1)
Quarter: 2018Q4

REPORT INFORMATION
  Report Type: Spontaneous
  Country: GB (occurrence: GB)
  Receive Date: 20181215
  Receipt Date: 20181215
  Transmission Date: 20190205
  Serious: Yes (Disabling, Other)
  Sender: FDA-Public Use
  Company Number: GB-TEVA-2018-GB-986610

PATIENT
  Age: 86 Year
  Sex: Male
  Weight: 73.02 kg

DRUGS (2)
  1. TERBINAFINE. [Suspect]
     Active Substance: TERBINAFINE
     Indication: NAIL DISCOLOURATION
     Dosage: 250 MILLIGRAM DAILY;
     Route: 048
     Dates: start: 20141101, end: 20170501
  2. LACTULOSE. [Concomitant]
     Active Substance: LACTULOSE

REACTIONS (4)
  - Dizziness [Recovered/Resolved]
  - Anosmia [Not Recovered/Not Resolved]
  - Headache [Recovered/Resolved]
  - Ageusia [Not Recovered/Not Resolved]

NARRATIVE: CASE EVENT DATE: 20150101
